FAERS Safety Report 7082545-1 (Version None)
Quarter: 2010Q3

REPORT INFORMATION
  Report Type: 
  Country: None (occurrence: None)
  Receive Date: 20100929
  Receipt Date: 20100601
  Transmission Date: 20110219
  Serious: No
  Sender: FDA-Public Use
  Company Number: US-WYE-H15475310

PATIENT
  Age: 69 Year
  Sex: Male
  Weight: 88.53 kg

DRUGS (2)
  1. PRISTIQ [Suspect]
     Indication: DEPRESSION
     Dosage: 25 MG 1X PER 1 DAY, ORAL; 150 MG 1X PER 1 DAY, ORAL; 100 MG 1X PER 1 DAY, ORAL
     Route: 048
     Dates: start: 20100401, end: 20100401
  2. PRISTIQ [Suspect]
     Indication: DEPRESSION
     Dosage: 25 MG 1X PER 1 DAY, ORAL; 150 MG 1X PER 1 DAY, ORAL; 100 MG 1X PER 1 DAY, ORAL
     Route: 048
     Dates: start: 20100401

REACTIONS (4)
  - CONDITION AGGRAVATED [None]
  - GASTRITIS [None]
  - GASTROOESOPHAGEAL REFLUX DISEASE [None]
  - NAUSEA [None]
